FAERS Safety Report 24642677 (Version 1)
Quarter: 2024Q4

REPORT INFORMATION
  Report Type: Spontaneous
  Country: US (occurrence: None)
  Receive Date: 20241120
  Receipt Date: 20241120
  Transmission Date: 20250115
  Serious: Yes (Hospitalization)
  Sender: Public
  Company Number: None

PATIENT
  Sex: Female

DRUGS (4)
  1. SILDENAFIL CITRATE [Suspect]
     Active Substance: SILDENAFIL CITRATE
     Indication: Pulmonary hypertension
     Dosage: 100 MG 3 TIMES DAILY BY MOUTH
     Route: 048
     Dates: start: 202010
  2. AMBRISENTAN [Suspect]
     Active Substance: AMBRISENTAN
     Indication: Pulmonary hypertension
     Dosage: 10 MG ONCE DAILY BY MOUTH?
     Route: 048
     Dates: start: 201907
  3. UPTRAVI [Concomitant]
     Active Substance: SELEXIPAG
  4. WINREVAIR [Suspect]
     Active Substance: SOTATERCEPT-CSRK

REACTIONS (5)
  - Dyspnoea exertional [None]
  - Swelling [None]
  - Pneumonia [None]
  - General physical health deterioration [None]
  - Decreased activity [None]
